FAERS Safety Report 6294057-3 (Version None)
Quarter: 2009Q3

REPORT INFORMATION
  Report Type: 
  Country: None (occurrence: None)
  Receive Date: 20090803
  Receipt Date: 20080902
  Transmission Date: 20100115
  Serious: No
  Sender: FDA-Public Use
  Company Number: A0745626A

PATIENT
  Age: 39 Year
  Sex: Female

DRUGS (1)
  1. NICORETTE [Suspect]

REACTIONS (2)
  - OROPHARYNGEAL PAIN [None]
  - PHARYNGEAL OEDEMA [None]
